FAERS Safety Report 8622832-6 (Version None)
Quarter: 2012Q3

REPORT INFORMATION
  Report Type: 
  Country: None (occurrence: None)
  Receive Date: 20120813
  Receipt Date: 20120801
  Transmission Date: 20120928
  Serious: Yes (Other)
  Sender: FDA-Public Use
  Company Number: DSA_58757_2012

PATIENT
  Age: 56 Year
  Sex: Male

DRUGS (11)
  1. ASPIRIN [Concomitant]
  2. TRETINOIN [Concomitant]
  3. FLUOROURACIL [Suspect]
     Indication: ACTINIC KERATOSIS
     Dosage: (DF TWICE DAILY, ON DORSAL ASPECTS OF RIGHT AND LEFT HANDS TOPICAL)
     Route: 061
  4. SIMVASTATIN [Concomitant]
  5. ACETAMINOPHEN W/ CODEINE [Concomitant]
  6. METFORMIN HYDROCHLORIDE [Concomitant]
  7. ENALAPRIL MALEATE [Concomitant]
  8. OMEPRAZOLE [Concomitant]
  9. DYAZIDE [Concomitant]
  10. PETROLATUM [Concomitant]
  11. RANITIDINE HYDROCHLORIDE [Concomitant]

REACTIONS (6)
  - SKIN EROSION [None]
  - PAIN [None]
  - RASH ERYTHEMATOUS [None]
  - RASH [None]
  - PRURITUS [None]
  - BLISTER [None]
